FAERS Safety Report 12750812 (Version 1)
Quarter: 2016Q3

REPORT INFORMATION
  Report Type: Spontaneous
  Country: US (occurrence: US)
  Receive Date: 20160916
  Receipt Date: 20160916
  Transmission Date: 20161109
  Serious: No
  Sender: FDA-Public Use
  Company Number: US-PFIZER INC-2016429564

PATIENT

DRUGS (1)
  1. ZOLOFT [Suspect]
     Active Substance: SERTRALINE HYDROCHLORIDE
     Dosage: 250 MG, DAILY

REACTIONS (4)
  - Asthenia [Unknown]
  - Condition aggravated [Unknown]
  - Prescribed overdose [Unknown]
  - Anxiety [Unknown]
